FAERS Safety Report 7903830-4 (Version None)
Quarter: 2011Q4

REPORT INFORMATION
  Report Type: 
  Country: None (occurrence: None)
  Receive Date: 20111109
  Receipt Date: 20111101
  Transmission Date: 20120403
  Serious: Yes (Other)
  Sender: FDA-Public Use
  Company Number: US-BRISTOL-MYERS SQUIBB COMPANY-15914112

PATIENT
  Age: 62 Year
  Sex: Female
  Weight: 114 kg

DRUGS (13)
  1. MS CONTIN [Concomitant]
  2. CYCLOBENZAPRINE [Concomitant]
  3. HYDROCHLOROTHIAZIDE [Concomitant]
  4. POTASSIUM [Concomitant]
  5. SALAGEN [Concomitant]
  6. ACCUPRIL [Concomitant]
  7. ORENCIA [Suspect]
     Indication: RHEUMATOID ARTHRITIS
     Route: 042
     Dates: start: 20100601, end: 20110201
  8. METHOTREXATE [Suspect]
     Indication: RHEUMATOID ARTHRITIS
     Dates: start: 20040101, end: 20090101
  9. LASIX [Concomitant]
  10. RELAFEN [Concomitant]
  11. MORPHINE SULFATE [Concomitant]
  12. ALBUTEROL INHALER [Concomitant]
  13. PRILOSEC [Concomitant]

REACTIONS (2)
  - KNEE OPERATION [None]
  - DYSPNOEA [None]
